FAERS Safety Report 4666191-2 (Version None)
Quarter: 2005Q2

REPORT INFORMATION
  Report Type: 
  Country: None (occurrence: None)
  Receive Date: 20050519
  Receipt Date: 20050228
  Transmission Date: 20051028
  Serious: Yes (Life-Threatening, Hospitalization, Other)
  Sender: FDA-Public Use
  Company Number: US-GLAXOSMITHKLINE-A0547508A

PATIENT
  Age: 34 Year
  Sex: Female
  Weight: 47 kg

DRUGS (2)
  1. GOODY'S EXTRA STRENGTH HEADACHE POWDER [Suspect]
     Indication: TOOTHACHE
     Route: 048
     Dates: start: 19970101
  2. ASPIRIN [Suspect]
     Route: 048

REACTIONS (83)
  - ABDOMINAL DISTENSION [None]
  - ABDOMINAL PAIN [None]
  - ALANINE AMINOTRANSFERASE INCREASED [None]
  - ALBUMIN GLOBULIN RATIO ABNORMAL [None]
  - ANALGESIC DRUG LEVEL INCREASED [None]
  - ANURIA [None]
  - ANXIETY [None]
  - ANXIETY DISORDER [None]
  - ASPARTATE AMINOTRANSFERASE INCREASED [None]
  - ASTHENIA [None]
  - BAND NEUTROPHIL COUNT INCREASED [None]
  - BLOOD ALBUMIN DECREASED [None]
  - BLOOD ALKALINE PHOSPHATASE INCREASED [None]
  - BLOOD POTASSIUM DECREASED [None]
  - BONE MARROW DEPRESSION [None]
  - BRONCHITIS [None]
  - CARDIAC ARREST [None]
  - COLECTOMY [None]
  - CONFUSIONAL STATE [None]
  - CONVULSION [None]
  - COUGH [None]
  - DEPENDENCE [None]
  - DISEASE RECURRENCE [None]
  - DIZZINESS [None]
  - DRUG ABUSER [None]
  - DRUG DEPENDENCE [None]
  - DRUG TOXICITY [None]
  - DRUG WITHDRAWAL HEADACHE [None]
  - DRUG WITHDRAWAL SYNDROME [None]
  - DYSPNOEA [None]
  - DYSURIA [None]
  - FLANK PAIN [None]
  - GASTRECTOMY [None]
  - GASTRIC OUTLET OBSTRUCTION [None]
  - GASTRIC ULCER [None]
  - GASTRIC ULCER PERFORATION [None]
  - GASTRITIS [None]
  - GASTROINTESTINAL OBSTRUCTION [None]
  - GASTROINTESTINAL OEDEMA [None]
  - GRAND MAL CONVULSION [None]
  - HAEMATEMESIS [None]
  - HEADACHE [None]
  - HEARING IMPAIRED [None]
  - HEPATIC FAILURE [None]
  - HYPOACUSIS [None]
  - HYPOKALAEMIA [None]
  - HYPOXIA [None]
  - IMPAIRED GASTRIC EMPTYING [None]
  - IMPAIRED HEALING [None]
  - INTENTIONAL MISUSE [None]
  - LEUKOCYTOSIS [None]
  - LIVER FUNCTION TEST ABNORMAL [None]
  - LOSS OF CONSCIOUSNESS [None]
  - LUNG DISORDER [None]
  - LUNG INFILTRATION [None]
  - MAJOR DEPRESSION [None]
  - METABOLIC ALKALOSIS [None]
  - METAPLASIA [None]
  - MYELODYSPLASTIC SYNDROME [None]
  - NAUSEA [None]
  - OEDEMA PERIPHERAL [None]
  - OVARIAN CYST [None]
  - OVERDOSE [None]
  - PAIN IN EXTREMITY [None]
  - PANCREATITIS ACUTE [None]
  - PARAESTHESIA [None]
  - PITTING OEDEMA [None]
  - PLEURITIC PAIN [None]
  - PNEUMONIA [None]
  - PROTEIN TOTAL DECREASED [None]
  - PULMONARY HYPERTENSION [None]
  - PULMONARY OEDEMA [None]
  - RESPIRATORY ALKALOSIS [None]
  - RESPIRATORY DISTRESS [None]
  - RESPIRATORY FAILURE [None]
  - SHOCK [None]
  - SYNCOPE [None]
  - THERAPEUTIC AGENT TOXICITY [None]
  - TINNITUS [None]
  - VOMITING [None]
  - WEIGHT DECREASED [None]
  - WHEEZING [None]
  - WHITE BLOOD CELL COUNT DECREASED [None]
